FAERS Safety Report 4960499-9 (Version None)
Quarter: 2006Q2

REPORT INFORMATION
  Report Type: 
  Country: None (occurrence: None)
  Receive Date: 20060403
  Receipt Date: 20060324
  Transmission Date: 20061013
  Serious: Yes (Death, Hospitalization)
  Sender: FDA-Public Use
  Company Number: DE-JNJFOC-20060102380

PATIENT
  Sex: Male

DRUGS (2)
  1. DURAGESIC-100 [Suspect]
     Route: 062
  2. DURAGESIC-100 [Suspect]
     Indication: PAIN
     Dosage: 3 PATCHES OF 75UG/HR.
     Route: 062

REACTIONS (8)
  - ARRHYTHMIA [None]
  - CARDIAC ARREST [None]
  - DISORIENTATION [None]
  - DRUG WITHDRAWAL SYNDROME [None]
  - DYSPHAGIA [None]
  - HYPOGLYCAEMIA [None]
  - MEDICATION ERROR [None]
  - NARCOTIC INTOXICATION [None]
